FAERS Safety Report 5144299-5 (Version None)
Quarter: 2006Q4

REPORT INFORMATION
  Report Type: 
  Country: None (occurrence: None)
  Receive Date: 20061030
  Receipt Date: 20061020
  Transmission Date: 20070319
  Serious: Yes (Other)
  Sender: FDA-Public Use
  Company Number: MC200600730

PATIENT
  Age: 84 Year
  Sex: Female

DRUGS (1)
  1. ANGIOMAX [Suspect]
     Indication: PERCUTANEOUS CORONARY INTERVENTION
     Dosage: SEE IMAGE
     Dates: start: 20061020, end: 20061020

REACTIONS (4)
  - AORTIC DISSECTION [None]
  - BLOOD PRESSURE INCREASED [None]
  - IATROGENIC INJURY [None]
  - PROCEDURAL COMPLICATION [None]
